FAERS Safety Report 12474124 (Version 2)
Quarter: 2016Q3

REPORT INFORMATION
  Report Type: Spontaneous
  Country: BR (occurrence: BR)
  Receive Date: 20160616
  Receipt Date: 20160727
  Transmission Date: 20161109
  Serious: Yes (Other)
  Sender: FDA-Public Use
  Company Number: BR-009507513-1606BRA006006

PATIENT
  Sex: Female
  Weight: 85 kg

DRUGS (6)
  1. AMLODIPINE [Concomitant]
     Active Substance: AMLODIPINE BESYLATE
     Indication: ANGINA PECTORIS
     Dosage: 5 MG, 1 TIME A DAY
     Route: 048
     Dates: start: 2006
  2. THERAPY UNSPECIFIED [Suspect]
     Active Substance: UNSPECIFIED INGREDIENT
     Dosage: UNK
  3. OLCADIL [Concomitant]
     Active Substance: CLOXAZOLAM
     Indication: INSOMNIA
     Dosage: UNK
     Route: 048
  4. LOSARTAN POTASSIUM. [Suspect]
     Active Substance: LOSARTAN POTASSIUM
     Indication: HYPERTENSION
     Dosage: 50 MG, TABLET, 1 TIME A DAY
     Route: 048
     Dates: start: 2006
  5. PURAN [Concomitant]
     Active Substance: LEVOTHYROXINE SODIUM
     Indication: THYROID HORMONE REPLACEMENT THERAPY
     Dosage: 25 MCG - 1 TABLET A DAY
     Route: 048
  6. DULOXETINE HYDROCHLORIDE. [Concomitant]
     Active Substance: DULOXETINE HYDROCHLORIDE
     Indication: FIBROMYALGIA
     Dosage: 30 MG, 1 TIME A DAY
     Route: 048
     Dates: start: 2010

REACTIONS (3)
  - Hysterectomy [Unknown]
  - Hydrosalpinx [Unknown]
  - Oophorectomy [Unknown]

NARRATIVE: CASE EVENT DATE: 2010
